FAERS Safety Report 5828323-X (Version None)
Quarter: 2008Q3

REPORT INFORMATION
  Report Type: 
  Country: None (occurrence: None)
  Receive Date: 20080731
  Receipt Date: 20080723
  Transmission Date: 20090109
  Serious: Yes (Death)
  Sender: FDA-Public Use
  Company Number: GB-WYE-G01810908

PATIENT
  Sex: Male
  Weight: 85 kg

DRUGS (3)
  1. TORISEL [Suspect]
     Indication: METASTATIC RENAL CELL CARCINOMA
     Route: 042
     Dates: start: 20080318, end: 20080626
  2. ERYTHROMYCIN [Concomitant]
     Route: 048
  3. LANSOPRAZOLE [Concomitant]
     Route: 048

REACTIONS (4)
  - INFECTION [None]
  - PNEUMONITIS [None]
  - PULMONARY EMBOLISM [None]
  - RESPIRATORY FAILURE [None]
